FAERS Safety Report 6920139-6 (Version None)
Quarter: 2010Q3

REPORT INFORMATION
  Report Type: 
  Country: None (occurrence: None)
  Receive Date: 20100811
  Receipt Date: 20100802
  Transmission Date: 20110219
  Serious: Yes (Other)
  Sender: FDA-Public Use
  Company Number: SE-GENENTECH-304991

PATIENT
  Sex: Male

DRUGS (1)
  1. NUTROPIN [Suspect]
     Indication: OBESITY
     Dosage: UNK
     Route: 058

REACTIONS (1)
  - SLEEP APNOEA SYNDROME [None]
